FAERS Safety Report 10654546 (Version 1)
Quarter: 2014Q4

REPORT INFORMATION
  Report Type: Spontaneous
  Country: US (occurrence: None)
  Receive Date: 20141215
  Receipt Date: 20141215
  Transmission Date: 20150529
  Serious: No
  Sender: FDA-Public Use
  Company Number: None

PATIENT
  Age: 30 Year
  Sex: Female

DRUGS (1)
  1. HUMIRA [Suspect]
     Active Substance: ADALIMUMAB
     Indication: PSORIASIS
     Dosage: 80MG, DAY 1 THAN 40 MG DAY 8, SUBCUTANEOYLY
     Route: 058
     Dates: start: 20141107, end: 20141121

REACTIONS (2)
  - Headache [None]
  - Injection site swelling [None]

NARRATIVE: CASE EVENT DATE: 20141121
